FAERS Safety Report 17443805 (Version 1)
Quarter: 2020Q1

REPORT INFORMATION
  Report Type: Spontaneous
  Country: US (occurrence: US)
  Receive Date: 20200220
  Receipt Date: 20200220
  Transmission Date: 20200409
  Serious: Yes (Other)
  Sender: FDA-Public Use
  Company Number: None

PATIENT
  Age: 66 Year
  Sex: Female
  Weight: 47 kg

DRUGS (6)
  1. VANCOMYCIN IV [Suspect]
     Active Substance: VANCOMYCIN HYDROCHLORIDE
     Indication: PNEUMONIA
     Dosage: ?          OTHER FREQUENCY:ONLY ONE DOSE;?
     Route: 042
     Dates: start: 20200204, end: 20200204
  2. BACLOFEN 60MG QID [Concomitant]
  3. ESOMEPRAZOLE 40MG BID [Concomitant]
  4. TIZANIDINE 2MG BID [Concomitant]
  5. ATORVASTATIN 20MG DAILY [Concomitant]
  6. FEXOFENADINE 180MG DAILY [Concomitant]

REACTIONS (2)
  - Rash erythematous [None]
  - Red man syndrome [None]

NARRATIVE: CASE EVENT DATE: 20200204
